FAERS Safety Report 6971612-6 (Version None)
Quarter: 2010Q3

REPORT INFORMATION
  Report Type: 
  Country: None (occurrence: None)
  Receive Date: 20100908
  Receipt Date: 20100825
  Transmission Date: 20110219
  Serious: Yes (Other)
  Sender: FDA-Public Use
  Company Number: JP-PFIZER INC-2010106813

PATIENT
  Age: 57 Year
  Sex: Female
  Weight: 28.3 kg

DRUGS (10)
  1. ZYVOX [Suspect]
     Indication: STAPHYLOCOCCAL INFECTION
     Dosage: 600 MG, 2X/DAY
     Route: 041
  2. GENTAMICIN [Concomitant]
     Indication: ENDOCARDITIS
     Dosage: 30 MG, 2X/DAY
     Route: 041
  3. ARBEKACIN [Concomitant]
     Dosage: 89-100MG, 1X/DAY
     Route: 041
  4. ARBEKACIN [Concomitant]
     Dosage: 117-120MG, 1X/ALTERNATE DAY
     Route: 041
  5. RIFAMPICIN [Concomitant]
     Dosage: 450 MG, 1X/DAY
     Route: 048
  6. MEXILETINE [Concomitant]
  7. AMIODARONE [Concomitant]
  8. MINOCYCLINE HCL [Concomitant]
     Dosage: 100 MG, 1X/DAY
     Route: 041
  9. VANCOMYCIN [Suspect]
     Indication: SEPSIS
     Dosage: 250 MG, SINGLE
  10. VANCOMYCIN [Suspect]
     Dosage: 350 MG, 2X/DAY

REACTIONS (3)
  - HYPONATRAEMIA [None]
  - NEUTROPHIL COUNT DECREASED [None]
  - PANCYTOPENIA [None]
